FAERS Safety Report 5691776-4 (Version None)
Quarter: 2008Q2

REPORT INFORMATION
  Report Type: 
  Country: None (occurrence: None)
  Receive Date: 20080401
  Receipt Date: 20080401
  Transmission Date: 20081010
  Serious: Yes (Life-Threatening)
  Sender: FDA-Public Use
  Company Number: None

PATIENT
  Age: 45 Year
  Sex: Female
  Weight: 86.1834 kg

DRUGS (1)
  1. SINGULAIR [Suspect]
     Indication: IMMUNE SYSTEM DISORDER
     Dosage: 10 MG DAILEY
     Dates: start: 20060301, end: 20080326

REACTIONS (4)
  - DEPRESSION [None]
  - NIGHTMARE [None]
  - SKIN LACERATION [None]
  - STRESS [None]
